FAERS Safety Report 9450475 (Version 2)
Quarter: 2013Q3

REPORT INFORMATION
  Report Type: Spontaneous
  Country: US (occurrence: US)
  Receive Date: 20130809
  Receipt Date: 20130909
  Transmission Date: 20140515
  Serious: Yes (Other)
  Sender: FDA-Public Use
  Company Number: US-009507513-1308USA003975

PATIENT
  Sex: Female

DRUGS (4)
  1. VICTRELIS [Suspect]
     Indication: HEPATITIS C
     Dosage: 12 DAILY
     Route: 048
     Dates: start: 20130709, end: 2013
  2. VICTRELIS [Suspect]
     Dosage: 6 DAILY
     Route: 048
     Dates: start: 2013, end: 2013
  3. REBETOL [Suspect]
     Indication: HEPATITIS C
     Dosage: UNK
     Route: 048
     Dates: start: 20130610, end: 201307
  4. PEGASYS [Suspect]
     Indication: HEPATITIS C
     Dosage: UNK
     Dates: start: 20130610, end: 201307

REACTIONS (2)
  - Seizure like phenomena [Recovered/Resolved]
  - Medication error [Unknown]
